FAERS Safety Report 24697468 (Version 3)
Quarter: 2025Q3

REPORT INFORMATION
  Report Type: Spontaneous
  Country: EU (occurrence: EU)
  Receive Date: 20241204
  Receipt Date: 20250810
  Transmission Date: 20251021
  Serious: Yes (Other)
  Sender: ALEXION PHARMACEUTICALS
  Company Number: EU-ELI_LILLY_AND_COMPANY-DE202411006496

PATIENT
  Sex: Female

DRUGS (16)
  1. ROSUVASTATIN [Interacting]
     Active Substance: ROSUVASTATIN
     Indication: Product used for unknown indication
     Route: 065
  2. METOPROLOL TARTRATE [Interacting]
     Active Substance: METOPROLOL TARTRATE
     Indication: Product used for unknown indication
     Route: 065
  3. ABEMACICLIB [Suspect]
     Active Substance: ABEMACICLIB
     Indication: Breast cancer metastatic
     Dosage: 200 MILLIGRAM, QD (100 MG, BID)
     Dates: start: 202101
  4. LETROZOLE [Interacting]
     Active Substance: LETROZOLE
     Indication: Product used for unknown indication
     Route: 065
  5. CALCIUM [Interacting]
     Active Substance: CALCIUM
     Indication: Product used for unknown indication
     Route: 065
  6. METAMIZOLE [Interacting]
     Active Substance: METAMIZOLE
     Indication: Product used for unknown indication
     Route: 065
  7. DENOSUMAB [Interacting]
     Active Substance: DENOSUMAB
     Indication: Product used for unknown indication
     Route: 065
  8. LOPERAMIDE [Interacting]
     Active Substance: LOPERAMIDE
     Indication: Product used for unknown indication
     Route: 065
  9. AZATHIOPRINE [Interacting]
     Active Substance: AZATHIOPRINE
     Indication: Product used for unknown indication
     Route: 065
  10. SPIRONOLACTONE [Interacting]
     Active Substance: SPIRONOLACTONE
     Indication: Product used for unknown indication
     Route: 065
  11. LEVOTHYROXINE [Interacting]
     Active Substance: LEVOTHYROXINE
     Indication: Product used for unknown indication
     Route: 065
  12. PANTOPRAZOLE SODIUM [Interacting]
     Active Substance: PANTOPRAZOLE SODIUM
     Indication: Product used for unknown indication
     Route: 065
  13. PROCHLORPERAZINE MALEATE [Interacting]
     Active Substance: PROCHLORPERAZINE MALEATE
     Indication: Product used for unknown indication
     Route: 065
  14. FENTANYL [Interacting]
     Active Substance: FENTANYL
     Indication: Product used for unknown indication
  15. ETORICOXIB [Interacting]
     Active Substance: ETORICOXIB
     Indication: Product used for unknown indication
     Route: 065
  16. INSULIN NOS [Interacting]
     Active Substance: INSULIN NOS
     Indication: Product used for unknown indication
     Route: 065

REACTIONS (3)
  - Drug interaction [Recovered/Resolved]
  - Dry skin [Unknown]
  - Pruritus [Unknown]

NARRATIVE: CASE EVENT DATE: 20210101
